FAERS Safety Report 12108164 (Version 9)
Quarter: 2017Q1

REPORT INFORMATION
  Report Type: Spontaneous
  Country: US (occurrence: US)
  Receive Date: 20160224
  Receipt Date: 20170213
  Transmission Date: 20170428
  Serious: Yes (Hospitalization, Other)
  Sender: FDA-Public Use
  Company Number: PHEH2016US004332

PATIENT
  Sex: Female

DRUGS (2)
  1. ZOFRAN [Suspect]
     Active Substance: ONDANSETRON HYDROCHLORIDE
     Indication: VOMITING IN PREGNANCY
     Dosage: 4 MG, PRN
     Route: 042
  2. ZOFRAN [Suspect]
     Active Substance: ONDANSETRON HYDROCHLORIDE
     Indication: VOMITING IN PREGNANCY
     Dosage: 8 MG, QD
     Route: 048
     Dates: start: 20060624, end: 20061224

REACTIONS (21)
  - Cholecystitis [Unknown]
  - Ataxia [Unknown]
  - Injury [Unknown]
  - Emotional distress [Unknown]
  - Otitis media [Unknown]
  - Bile duct stone [Unknown]
  - Gastroenteritis viral [Unknown]
  - Anxiety [Unknown]
  - Cholelithiasis [Unknown]
  - Dehydration [Unknown]
  - Pain [Unknown]
  - Muscle strain [Unknown]
  - Abdominal pain [Unknown]
  - Scoliosis [Unknown]
  - Abdominal tenderness [Unknown]
  - Maternal exposure during pregnancy [Unknown]
  - Gallbladder pain [Unknown]
  - Aphthous ulcer [Unknown]
  - Cystitis [Unknown]
  - Diarrhoea [Unknown]
  - Product use issue [Unknown]
